FAERS Safety Report 9849766 (Version 1)
Quarter: 2014Q1

REPORT INFORMATION
  Report Type: Spontaneous
  Country: US (occurrence: None)
  Receive Date: 20140127
  Receipt Date: 20140127
  Transmission Date: 20141002
  Serious: Yes (Life-Threatening, Hospitalization)
  Sender: FDA-Public Use
  Company Number: None

PATIENT
  Age: 82 Year
  Sex: Male
  Weight: 58.5 kg

DRUGS (2)
  1. HYDRALAZINE [Suspect]
     Indication: HYPERTENSION
     Route: 042
     Dates: start: 20131028, end: 20131028
  2. IODIXANOL [Suspect]
     Indication: FISTULOGRAM
     Route: 042
     Dates: start: 20131028, end: 20131028

REACTIONS (9)
  - Cough [None]
  - Tachycardia [None]
  - Blood pressure decreased [None]
  - Somnolence [None]
  - Electrocardiogram ST segment abnormal [None]
  - Lip swelling [None]
  - Eye swelling [None]
  - Breath sounds abnormal [None]
  - Contrast media reaction [None]
